FAERS Safety Report 5236542-9 (Version None)
Quarter: 2007Q1

REPORT INFORMATION
  Report Type: 
  Country: None (occurrence: None)
  Receive Date: 20070208
  Receipt Date: 20070202
  Transmission Date: 20070707
  Serious: Yes (Hospitalization)
  Sender: FDA-Public Use
  Company Number: URSO-2006-047

PATIENT
  Age: 59 Year
  Sex: Male

DRUGS (15)
  1. URSO 250 [Suspect]
     Indication: HEPATITIS C
     Dosage: SEE IMAGE
     Route: 048
     Dates: end: 20051005
  2. URSO 250 [Suspect]
     Indication: HEPATITIS C
     Dosage: SEE IMAGE
     Route: 048
     Dates: start: 20051006, end: 20061016
  3. NIKORANMART (NICORANDIL) [Suspect]
     Indication: PRINZMETAL ANGINA
     Dosage: 15 MG PO
     Route: 048
     Dates: start: 20040721, end: 20061016
  4. NIKORANMART (NICORANDIL) [Suspect]
     Indication: PRINZMETAL ANGINA
     Dosage: 15 MG PO
     Route: 048
     Dates: start: 20061020
  5. BUFFERIN [Suspect]
     Indication: PRINZMETAL ANGINA
     Dosage: 81 MG PO
     Route: 048
     Dates: start: 20031224, end: 20061016
  6. BUFFERIN [Suspect]
     Indication: PRINZMETAL ANGINA
     Dosage: 81 MG PO
     Route: 048
     Dates: start: 20061020, end: 20061023
  7. PROMAC(POLAPREZINC) [Suspect]
     Indication: GASTRIC ULCER
     Dosage: 1.0G PO
     Route: 048
     Dates: start: 20040616, end: 20061016
  8. PRAVASTATIN SODIUM [Suspect]
     Indication: HYPERLIPIDAEMIA
     Dosage: 10MG PO
     Route: 048
     Dates: start: 20051014, end: 20061016
  9. LANSOPRAZOLE [Suspect]
     Indication: GASTRIC ULCER
     Dosage: SEE IMAGE
     Route: 048
     Dates: start: 20060630, end: 20060706
  10. LANSOPRAZOLE [Suspect]
     Indication: GASTRIC ULCER
     Dosage: SEE IMAGE
     Route: 048
     Dates: start: 20060707, end: 20060804
  11. LANSOPRAZOLE [Suspect]
     Indication: GASTRIC ULCER
     Dosage: SEE IMAGE
     Route: 048
     Dates: start: 20060805, end: 20061016
  12. STRONGER NEO MINOPHAGEN C(GLYCYRRHIZIN, GLYCINE, CYSTEINE COMBINED DRU [Suspect]
     Indication: HEPATITIS C
     Dosage: 3A, 5A IV
     Route: 042
     Dates: start: 20060914, end: 20061001
  13. STRONGER NEO MINOPHAGEN C(GLYCYRRHIZIN, GLYCINE, CYSTEINE COMBINED DRU [Suspect]
     Indication: HEPATITIS C
     Dosage: 3A, 5A IV
     Route: 042
     Dates: start: 20061002, end: 20061013
  14. ADELAVIN (LIVER EXTRACT, FLAVIN ADENINE DINUCLEOTIDE) [Suspect]
     Indication: HEPATITIS C
     Dosage: 1A IV
     Route: 042
     Dates: start: 20060914, end: 20061013
  15. COSPANON(FLOPROPIONE) [Suspect]
     Indication: HEPATITIS C
     Dosage: 240MG PO
     Route: 048
     Dates: start: 20061006, end: 20061016

REACTIONS (6)
  - ALANINE AMINOTRANSFERASE INCREASED [None]
  - ASPARTATE AMINOTRANSFERASE INCREASED [None]
  - BODY TEMPERATURE INCREASED [None]
  - CONDITION AGGRAVATED [None]
  - HEPATIC FUNCTION ABNORMAL [None]
  - HEPATITIS C [None]
